FAERS Safety Report 5408857-2 (Version None)
Quarter: 2007Q3

REPORT INFORMATION
  Report Type: 
  Country: None (occurrence: None)
  Receive Date: 20070808
  Receipt Date: 20070727
  Transmission Date: 20080115
  Serious: Yes (Other)
  Sender: FDA-Public Use
  Company Number: US-PFIZER INC-2007062478

PATIENT
  Sex: Female
  Weight: 79.4 kg

DRUGS (5)
  1. XALATAN [Suspect]
     Indication: GLAUCOMA
  2. ADVAIR DISKUS 100/50 [Concomitant]
  3. COMBIVENT [Concomitant]
  4. IBUPROFEN [Concomitant]
  5. MULTIVITAMIN [Concomitant]

REACTIONS (2)
  - COUGH [None]
  - WHEEZING [None]
